FAERS Safety Report 13761298 (Version 1)
Quarter: 2017Q3

REPORT INFORMATION
  Report Type: Spontaneous
  Country: DK (occurrence: DK)
  Receive Date: 20170717
  Receipt Date: 20170717
  Transmission Date: 20171127
  Serious: Yes (Hospitalization)
  Sender: FDA-Public Use
  Company Number: PHHY2017DK098804

PATIENT
  Age: 64 Year
  Sex: Male
  Weight: 60 kg

DRUGS (1)
  1. BIOCLAVID [Suspect]
     Active Substance: AMOXICILLIN\CLAVULANIC ACID
     Indication: PNEUMONIA BACTERIAL
     Dosage: 1 DF, TID
     Route: 048
     Dates: start: 20170327

REACTIONS (6)
  - Hepatic enzyme abnormal [Unknown]
  - Jaundice [Unknown]
  - Chromaturia [Unknown]
  - Cholangitis acute [Recovering/Resolving]
  - Faeces pale [Unknown]
  - Abdominal pain [Unknown]

NARRATIVE: CASE EVENT DATE: 20170501
